FAERS Safety Report 7057198-9 (Version None)
Quarter: 2010Q4

REPORT INFORMATION
  Report Type: 
  Country: None (occurrence: None)
  Receive Date: 20101022
  Receipt Date: 20101013
  Transmission Date: 20110411
  Serious: Yes (Hospitalization)
  Sender: FDA-Public Use
  Company Number: FR-JNJFOC-20101004681

PATIENT
  Sex: Female

DRUGS (12)
  1. HALDOL [Suspect]
     Indication: PRODUCT USED FOR UNKNOWN INDICATION
     Route: 065
     Dates: start: 20100803, end: 20100824
  2. RISPERDAL [Suspect]
     Indication: AGITATION
     Route: 065
  3. TIAPRIDAL [Suspect]
     Indication: PRODUCT USED FOR UNKNOWN INDICATION
     Route: 048
     Dates: start: 20100803, end: 20100824
  4. LEXOMIL [Suspect]
     Indication: PRODUCT USED FOR UNKNOWN INDICATION
     Route: 048
     Dates: start: 20100803, end: 20100824
  5. SERESTA [Suspect]
     Indication: PRODUCT USED FOR UNKNOWN INDICATION
     Route: 048
     Dates: start: 20100301, end: 20100823
  6. SERESTA [Suspect]
     Route: 048
     Dates: start: 20100301, end: 20100823
  7. IMOVANE [Suspect]
     Indication: PRODUCT USED FOR UNKNOWN INDICATION
     Route: 048
     Dates: start: 20100803, end: 20100824
  8. PERINDOPRIL ERBUMINE [Concomitant]
  9. ASPEGIC 1000 [Concomitant]
  10. ACEBUTOLOL [Concomitant]
  11. FENOFIBRATE [Concomitant]
  12. NITRODERM [Concomitant]

REACTIONS (11)
  - ALTERED STATE OF CONSCIOUSNESS [None]
  - BRONCHIAL OBSTRUCTION [None]
  - CEREBRAL INFARCTION [None]
  - COMA [None]
  - CYTOLYTIC HEPATITIS [None]
  - DEHYDRATION [None]
  - DYSPHAGIA [None]
  - HYPOTENSION [None]
  - MULTI-ORGAN FAILURE [None]
  - PYREXIA [None]
  - RENAL FAILURE [None]
